FAERS Safety Report 15401077 (Version 1)
Quarter: 2018Q3

REPORT INFORMATION
  Report Type: Report from Study
  Country: US (occurrence: US)
  Receive Date: 20180919
  Receipt Date: 20180919
  Transmission Date: 20181010
  Serious: No
  Sender: FDA-Public Use
  Company Number: PHHY2018US101473

PATIENT
  Sex: Female

DRUGS (3)
  1. ENTRESTO [Suspect]
     Active Substance: SACUBITRIL\VALSARTAN
     Dosage: 1 DF(SACUBITRIL 49 MG/ VALSARTAN 51 MG), UNK
     Route: 065
  2. ENTRESTO [Suspect]
     Active Substance: SACUBITRIL\VALSARTAN
     Indication: CARDIAC FAILURE CONGESTIVE
     Dosage: 1 DFSACUBITRIL 24 MG/ VALSARTAN 26 MG), UNK
     Route: 065
  3. ENTRESTO [Suspect]
     Active Substance: SACUBITRIL\VALSARTAN
     Dosage: 1 DFSACUBITRIL 24 MG/ VALSARTAN 26 MG), UNK
     Route: 065

REACTIONS (3)
  - Dizziness [Unknown]
  - Presyncope [Unknown]
  - Gait disturbance [Unknown]
